FAERS Safety Report 6604643-6 (Version None)
Quarter: 2010Q1

REPORT INFORMATION
  Report Type: 
  Country: None (occurrence: None)
  Receive Date: 20100226
  Receipt Date: 20100218
  Transmission Date: 20100710
  Serious: Yes (Hospitalization)
  Sender: FDA-Public Use
  Company Number: FR-ROCHE-673390

PATIENT
  Sex: Female
  Weight: 54.5 kg

DRUGS (3)
  1. BEVACIZUMAB [Suspect]
     Indication: NON-SMALL CELL LUNG CANCER
     Dosage: PERMANENTLY DISCONTINUED
     Route: 042
     Dates: start: 20090903, end: 20091110
  2. PEMETREXED [Suspect]
     Indication: NON-SMALL CELL LUNG CANCER
     Dosage: PERMANENTLY DISCONTINUED
     Route: 042
     Dates: start: 20090903, end: 20091110
  3. CISPLATIN [Suspect]
     Route: 065

REACTIONS (2)
  - ANAEMIA [None]
  - NEUTROPENIA [None]
